FAERS Safety Report 17562684 (Version 2)
Quarter: 2020Q1

REPORT INFORMATION
  Report Type: Spontaneous
  Country: US (occurrence: US)
  Receive Date: 20200319
  Receipt Date: 20200327
  Transmission Date: 20200409
  Serious: Yes (Death)
  Sender: FDA-Public Use
  Company Number: US-KEDRION-2020-000085

PATIENT

DRUGS (3)
  1. RHOGAM [Suspect]
     Active Substance: HUMAN RHO(D) IMMUNE GLOBULIN
     Dosage: 1 DOSAGE FORM
     Route: 064
     Dates: start: 20170728, end: 20170728
  2. ANTIBIOTICS [Concomitant]
     Active Substance: UNSPECIFIED INGREDIENT
     Dosage: UNK
     Route: 064
     Dates: start: 20170803
  3. INSULIN NPH                        /01223208/ [Concomitant]
     Active Substance: INSULIN BEEF
     Route: 064

REACTIONS (3)
  - Hydrops foetalis [Fatal]
  - Product administration error [Unknown]
  - Maternal exposure during pregnancy [Unknown]

NARRATIVE: CASE EVENT DATE: 20170810
